FAERS Safety Report 7206788-9 (Version None)
Quarter: 2010Q4

REPORT INFORMATION
  Report Type: 
  Country: None (occurrence: None)
  Receive Date: 20101217
  Receipt Date: 20101208
  Transmission Date: 20110411
  Serious: Yes (Hospitalization)
  Sender: FDA-Public Use
  Company Number: 2010SP064016

PATIENT
  Age: 63 Year
  Sex: Female

DRUGS (4)
  1. SAPHRIS [Suspect]
     Indication: PRODUCT USED FOR UNKNOWN INDICATION
     Dosage: 10 MG; BID; SL
     Route: 060
     Dates: start: 20101206, end: 20101207
  2. ABILIFY [Concomitant]
  3. ASCORBIC ACID [Concomitant]
  4. SYNTHROID [Concomitant]

REACTIONS (1)
  - ELECTROCARDIOGRAM QT PROLONGED [None]
